FAERS Safety Report 10074511 (Version 1)
Quarter: 2014Q2

REPORT INFORMATION
  Report Type: Spontaneous
  Country: US (occurrence: US)
  Receive Date: 20140411
  Receipt Date: 20140411
  Transmission Date: 20141212
  Serious: No
  Sender: FDA-Public Use
  Company Number: US-SA-2013SA116762

PATIENT
  Age: 23 Year
  Sex: Male

DRUGS (2)
  1. ALLEGRA D [Suspect]
     Indication: SINUSITIS
     Route: 048
     Dates: start: 20131104
  2. AUGMENTIN [Concomitant]

REACTIONS (2)
  - Medication residue present [Unknown]
  - Off label use [Unknown]
